FAERS Safety Report 17093602 (Version 1)
Quarter: 2019Q4

REPORT INFORMATION
  Report Type: Spontaneous
  Country: US (occurrence: US)
  Receive Date: 20191129
  Receipt Date: 20191129
  Transmission Date: 20200122
  Serious: No
  Sender: FDA-Public Use
  Company Number: US-SHIRE-US201941206

PATIENT
  Age: 33 Year
  Sex: Male
  Weight: 85.71 kg

DRUGS (8)
  1. STRATTERA [Concomitant]
     Active Substance: ATOMOXETINE HYDROCHLORIDE
     Indication: PRODUCT USED FOR UNKNOWN INDICATION
  2. SINGULAIR [Concomitant]
     Active Substance: MONTELUKAST SODIUM
     Indication: HYPERSENSITIVITY
  3. ALREX [LOTEPREDNOL ETABONATE] [Concomitant]
     Indication: HYPERSENSITIVITY
  4. ADVIL [IBUPROFEN] [Concomitant]
     Active Substance: IBUPROFEN
     Indication: HYPERSENSITIVITY
  5. VYVANSE [Suspect]
     Active Substance: LISDEXAMFETAMINE DIMESYLATE
     Indication: ATTENTION DEFICIT/HYPERACTIVITY DISORDER
     Dosage: 50 MILLIGRAM
     Route: 065
     Dates: start: 2011
  6. FINASTERIDE. [Concomitant]
     Active Substance: FINASTERIDE
     Indication: ALOPECIA
  7. XYZAL [Concomitant]
     Active Substance: LEVOCETIRIZINE DIHYDROCHLORIDE
     Indication: HYPERSENSITIVITY
  8. VITAMIN C [Concomitant]
     Active Substance: ASCORBIC ACID
     Indication: SUPPLEMENTATION THERAPY

REACTIONS (7)
  - Product physical issue [Not Recovered/Not Resolved]
  - Headache [Recovered/Resolved]
  - Drug ineffective [Not Recovered/Not Resolved]
  - Suspected product tampering [Not Recovered/Not Resolved]
  - Photosensitivity reaction [Recovered/Resolved]
  - Fatigue [Recovering/Resolving]
  - Product dose omission [Not Recovered/Not Resolved]

NARRATIVE: CASE EVENT DATE: 20191115
